FAERS Safety Report 12896297 (Version 1)
Quarter: 2016Q4

REPORT INFORMATION
  Report Type: Spontaneous
  Country: US (occurrence: US)
  Receive Date: 20161031
  Receipt Date: 20161031
  Transmission Date: 20170207
  Serious: No
  Sender: FDA-Public Use
  Company Number: US-JAZZ-2016-US-016274

PATIENT
  Sex: Male

DRUGS (19)
  1. ARMOUR THYROID [Concomitant]
     Active Substance: THYROID, PORCINE
  2. RITALIN [Concomitant]
     Active Substance: METHYLPHENIDATE HYDROCHLORIDE
  3. WELLBUTRIN [Concomitant]
     Active Substance: BUPROPION HYDROCHLORIDE
  4. SYNTHROID [Concomitant]
     Active Substance: LEVOTHYROXINE SODIUM
  5. FLONASE [Concomitant]
     Active Substance: FLUTICASONE PROPIONATE
  6. AZELASTINE [Concomitant]
     Active Substance: AZELASTINE
  7. XYREM [Suspect]
     Active Substance: SODIUM OXYBATE
     Dosage: DOSE ADJUSTMENTS
     Route: 048
     Dates: start: 201403, end: 201508
  8. XYREM [Suspect]
     Active Substance: SODIUM OXYBATE
     Dosage: 3 G, BID
     Route: 048
     Dates: start: 201508
  9. AMBIEN [Concomitant]
     Active Substance: ZOLPIDEM TARTRATE
  10. AMINO ACID [Concomitant]
     Active Substance: AMINO ACIDS
  11. PROVIGIL [Concomitant]
     Active Substance: MODAFINIL
  12. EMERGEN C [Concomitant]
     Active Substance: MINERALS\VITAMINS
  13. NORCO [Concomitant]
     Active Substance: ACETAMINOPHEN\HYDROCODONE BITARTRATE
  14. XYREM [Suspect]
     Active Substance: SODIUM OXYBATE
     Indication: NARCOLEPSY
     Dosage: 2.25 G, BID
     Route: 048
     Dates: start: 201401, end: 201403
  15. CYTOMEL [Concomitant]
     Active Substance: LIOTHYRONINE SODIUM
  16. LIOTHYRONINE [Concomitant]
     Active Substance: LIOTHYRONINE
  17. ADVAIR HFA [Concomitant]
     Active Substance: FLUTICASONE PROPIONATE\SALMETEROL XINAFOATE
  18. MULTIVITAMINS [Concomitant]
     Active Substance: VITAMINS
  19. SERTRALINE HCL [Concomitant]
     Active Substance: SERTRALINE HYDROCHLORIDE

REACTIONS (2)
  - Seasonal allergy [Recovering/Resolving]
  - Adjustment disorder with depressed mood [Unknown]
